FAERS Safety Report 21499621 (Version 1)
Quarter: 2022Q4

REPORT INFORMATION
  Report Type: Spontaneous
  Country: IT (occurrence: IT)
  Receive Date: 20221024
  Receipt Date: 20221024
  Transmission Date: 20230112
  Serious: Yes (Other)
  Sender: FDA-Public Use
  Company Number: IT-BAXTER-2022BAX021565

PATIENT
  Age: 45 Year
  Sex: Male
  Weight: 82 kg

DRUGS (15)
  1. DEXAMETHASONE [Suspect]
     Active Substance: DEXAMETHASONE
     Indication: Diffuse large B-cell lymphoma
     Dosage: DOSE FORM: UNKNOWN
     Route: 065
     Dates: start: 201802, end: 201805
  2. RITUXIMAB [Suspect]
     Active Substance: RITUXIMAB
     Indication: Non-Hodgkin^s lymphoma
     Dosage: DOSE FORM: UNKNOWN
     Route: 065
     Dates: start: 2012, end: 2012
  3. RITUXIMAB [Suspect]
     Active Substance: RITUXIMAB
     Indication: Marginal zone lymphoma
     Dosage: DOSE FORM: UNKNOWN
     Route: 065
     Dates: start: 2017, end: 201710
  4. REVLIMID [Suspect]
     Active Substance: LENALIDOMIDE
     Indication: Diffuse large B-cell lymphoma
     Dosage: DOSE FORM: UNKNOWN
     Route: 065
     Dates: start: 202006, end: 202006
  5. DOXORUBICIN [Suspect]
     Active Substance: DOXORUBICIN
     Indication: Marginal zone lymphoma
     Dosage: DOSE FORM: UNKNOWN
     Route: 065
     Dates: start: 2017, end: 201710
  6. CYTARABINE [Suspect]
     Active Substance: CYTARABINE
     Indication: Diffuse large B-cell lymphoma
     Dosage: DOSE FORM: UNKNOWN
     Route: 065
     Dates: start: 201802, end: 201805
  7. POLATUZUMAB VEDOTIN [Suspect]
     Active Substance: POLATUZUMAB VEDOTIN
     Indication: Non-Hodgkin^s lymphoma stage IV
     Dosage: DOSE FORM: UNKNOWN
     Route: 065
  8. UMBRALISIB [Suspect]
     Active Substance: UMBRALISIB
     Indication: Diffuse large B-cell lymphoma
     Dosage: DOSE FORM: UNKNOWN
     Route: 065
     Dates: start: 201808, end: 201901
  9. CISPLATIN [Suspect]
     Active Substance: CISPLATIN
     Indication: Diffuse large B-cell lymphoma
     Dosage: DOSE FORM: UNKNOWN
     Route: 065
     Dates: start: 201802, end: 201805
  10. VINCRISTINE [Suspect]
     Active Substance: VINCRISTINE
     Indication: Marginal zone lymphoma
     Dosage: DOSE FORM: UNKNOWN
     Route: 065
     Dates: start: 2017, end: 201710
  11. VINCRISTINE [Suspect]
     Active Substance: VINCRISTINE
     Dosage: DOSE FORM: UNKNOWN
     Route: 065
     Dates: start: 2012, end: 2012
  12. CYCLOPHOSPHAMIDE [Suspect]
     Active Substance: CYCLOPHOSPHAMIDE
     Indication: Marginal zone lymphoma
     Dosage: DOSE FORM: UNKNOWN
     Route: 065
     Dates: start: 2012, end: 2012
  13. IBRUTINIB [Suspect]
     Active Substance: IBRUTINIB
     Indication: Diffuse large B-cell lymphoma
     Dosage: DOSE FORM: UNKNOWN
     Route: 065
     Dates: start: 201909, end: 202001
  14. PREDNISONE [Suspect]
     Active Substance: PREDNISONE
     Indication: Marginal zone lymphoma
     Dosage: DOSE FORM: UNKNOWN
     Route: 065
     Dates: start: 2012, end: 2012
  15. PREDNISONE [Suspect]
     Active Substance: PREDNISONE
     Dosage: DOSE FORM: UNKNOWN
     Route: 065
     Dates: start: 2017, end: 201710

REACTIONS (1)
  - Nervous system disorder [Unknown]
